FAERS Safety Report 11076031 (Version 3)
Quarter: 2015Q2

REPORT INFORMATION
  Report Type: Spontaneous
  Country: FR (occurrence: FR)
  Receive Date: 20150429
  Receipt Date: 20150610
  Transmission Date: 20150821
  Serious: Yes (Hospitalization, Other)
  Sender: FDA-Public Use
  Company Number: FR-PFIZER INC-2015141540

PATIENT
  Age: 44 Year
  Sex: Male

DRUGS (10)
  1. PIPERACILLINE / TAZOBACTAM MYLAN [Suspect]
     Active Substance: PIPERACILLIN SODIUM\TAZOBACTAM SODIUM
     Dosage: 16 G, DAILY
     Route: 042
     Dates: end: 20150415
  2. PIPERACILLINE / TAZOBACTAM MYLAN [Suspect]
     Active Substance: PIPERACILLIN SODIUM\TAZOBACTAM SODIUM
     Indication: STREPTOCOCCAL BACTERAEMIA
     Dosage: 12 G, DAILY
     Route: 042
     Dates: start: 20150326
  3. OXALIPLATINE HOSPIRA [Suspect]
     Active Substance: OXALIPLATIN
     Indication: ADENOCARCINOMA PANCREAS
     Dosage: 150.45 MG, DAILY
     Route: 042
     Dates: start: 20150319, end: 20150319
  4. AMIKACINE MYLAN [Concomitant]
     Active Substance: AMIKACIN
     Dosage: UNK
     Dates: start: 20150403, end: 20150407
  5. GENTAMICINE PANPHARMA [Concomitant]
     Active Substance: GENTAMICIN
     Dosage: UNK
     Dates: start: 20150326, end: 20150327
  6. FLUOROURACILE ACCORD [Suspect]
     Active Substance: FLUOROURACIL
     Dosage: 4248 MG, UNK (2ND COURSE)
     Route: 042
     Dates: start: 20150321, end: 20150321
  7. DALACINE [Suspect]
     Active Substance: CLINDAMYCIN HYDROCHLORIDE
     Indication: STREPTOCOCCAL BACTERAEMIA
     Dosage: 300 MG, 4X/DAY
     Route: 048
     Dates: start: 20150410, end: 20150415
  8. FLUOROURACILE ACCORD [Suspect]
     Active Substance: FLUOROURACIL
     Indication: ADENOCARCINOMA PANCREAS
     Dosage: 708 MG, UNK (2ND COURSE)
     Route: 042
     Dates: start: 20150319, end: 20150319
  9. IRINOTECAN HOSPIRA [Suspect]
     Active Substance: IRINOTECAN
     Dosage: 159.3 MG, SINGLE
     Route: 042
     Dates: start: 20150319, end: 20150319
  10. CLINDAMYCIN [Suspect]
     Active Substance: CLINDAMYCIN\CLINDAMYCIN PHOSPHATE
     Indication: STREPTOCOCCAL BACTERAEMIA
     Dosage: 3 DF, 3X/DAY
     Route: 042
     Dates: start: 20150403, end: 20150409

REACTIONS (3)
  - Thrombocytopenia [Recovered/Resolved]
  - Anaemia [Recovered/Resolved]
  - Agranulocytosis [Recovered/Resolved]

NARRATIVE: CASE EVENT DATE: 20150415
